FAERS Safety Report 18899210 (Version 1)
Quarter: 2021Q1

REPORT INFORMATION
  Report Type: Report from Study
  Country: GB (occurrence: GB)
  Receive Date: 20210216
  Receipt Date: 20210216
  Transmission Date: 20210420
  Serious: Yes (Death)
  Sender: FDA-Public Use
  Company Number: GB-GLAXOSMITHKLINE-GB2021GSK040944

PATIENT

DRUGS (2)
  1. BELIMUMAB [Suspect]
     Active Substance: BELIMUMAB
     Indication: VASCULITIS
  2. BELIMUMAB [Suspect]
     Active Substance: BELIMUMAB
     Indication: CONNECTIVE TISSUE DISORDER

REACTIONS (1)
  - COVID-19 [Fatal]
